FAERS Safety Report 9807052 (Version 2)
Quarter: 2014Q1

REPORT INFORMATION
  Report Type: Report from Study
  Country: AU (occurrence: AU)
  Receive Date: 20140110
  Receipt Date: 20140213
  Transmission Date: 20141002
  Serious: Yes (Disabling, Other)
  Sender: FDA-Public Use
  Company Number: AU-ROCHE-1330527

PATIENT
  Age: 35 Year
  Sex: Male
  Weight: 76.4 kg

DRUGS (1)
  1. AVASTIN [Suspect]
     Indication: NEUROFIBROMATOSIS
     Dosage: 6 WEEK BREAK IN TREATMENT DURING DEC AND JAN
     Route: 042
     Dates: start: 20120228, end: 20131126

REACTIONS (3)
  - Deafness [Not Recovered/Not Resolved]
  - Disease progression [Unknown]
  - Ear infection [Unknown]
